FAERS Safety Report 14263909 (Version 2)
Quarter: 2017Q4

REPORT INFORMATION
  Report Type: Spontaneous
  Country: TW (occurrence: TW)
  Receive Date: 20171208
  Receipt Date: 20171218
  Transmission Date: 20180321
  Serious: Yes (Death, Other)
  Sender: FDA-Public Use
  Company Number: TW-009507513-1712USA004466

PATIENT
  Age: 41 Year
  Sex: Female

DRUGS (5)
  1. PIPERACILLIN AND TAZOBACTAM [Concomitant]
     Active Substance: PIPERACILLIN SODIUM\TAZOBACTAM SODIUM
     Indication: OSTEOMYELITIS BACTERIAL
     Dosage: UNK
  2. CEFOPERAZONE SODIUM (+) SULBACTAM SODIUM [Concomitant]
     Active Substance: CEFOPERAZONE SODIUM\SULBACTAM SODIUM
     Indication: PNEUMONIA KLEBSIELLA
     Dosage: UNK
  3. CEFMETAZOLE [Concomitant]
     Active Substance: CEFMETAZOLE
  4. TIGECYCLINE. [Concomitant]
     Active Substance: TIGECYCLINE
     Indication: OSTEOMYELITIS BACTERIAL
     Dosage: UNK
  5. DAPTOMYCIN. [Suspect]
     Active Substance: DAPTOMYCIN
     Indication: OSTEOMYELITIS BACTERIAL
     Dosage: UNK (DAY 47-DAY 90)
     Route: 065

REACTIONS (5)
  - Osteomyelitis [Unknown]
  - Death [Fatal]
  - Altered state of consciousness [Unknown]
  - Drug ineffective [Unknown]
  - Sternotomy [Unknown]
